FAERS Safety Report 6402425-1 (Version None)
Quarter: 2009Q4

REPORT INFORMATION
  Report Type: 
  Country: None (occurrence: None)
  Receive Date: 20091015
  Receipt Date: 20091007
  Transmission Date: 20100525
  Serious: Yes (Death, Hospitalization)
  Sender: FDA-Public Use
  Company Number: US-GENENTECH-292084

PATIENT
  Sex: Female
  Weight: 66.25 kg

DRUGS (10)
  1. AVASTIN [Suspect]
     Indication: COLON CANCER
     Dosage: UNK
  2. ELOXATIN [Suspect]
     Indication: COLON CANCER
     Dosage: 165 MG, Q2W
     Route: 042
     Dates: start: 20090202, end: 20090413
  3. LORAZEPAM [Concomitant]
     Indication: ANXIETY
     Dosage: 0.5 MG, BID
     Route: 065
  4. DARVOCET-N 100 [Concomitant]
     Indication: PAIN
     Dosage: UNK TABLET, UNK
     Route: 065
  5. IMIPRAMINE EMBONATE [Concomitant]
     Indication: SLEEP DISORDER
     Dosage: 100 MG, QHS
     Route: 065
  6. LEUCOVORIN CALCIUM [Concomitant]
     Indication: DRUG USE FOR UNKNOWN INDICATION
     Dosage: UNK UNK, UNKNOWN
     Route: 065
     Dates: start: 20090413
  7. FLUOROURACIL [Concomitant]
     Indication: DRUG USE FOR UNKNOWN INDICATION
     Dosage: UNK UNK, UNKNOWN
     Route: 065
     Dates: start: 20090413
  8. DOXORUBICIN HCL [Concomitant]
     Indication: DRUG USE FOR UNKNOWN INDICATION
     Dosage: UNK UNK, UNKNOWN
     Route: 065
     Dates: start: 20090413
  9. DEXAMETHASONE 0.5MG TAB [Concomitant]
     Indication: DRUG USE FOR UNKNOWN INDICATION
     Dosage: UNK UNK, UNKNOWN
     Route: 065
     Dates: start: 20090413
  10. DIPHENHYDRAMINE HYDROCHLORIDE [Concomitant]
     Indication: DRUG USE FOR UNKNOWN INDICATION
     Dosage: UNK UNK, UNKNOWN
     Route: 042
     Dates: start: 20090413

REACTIONS (3)
  - DYSPNOEA [None]
  - PNEUMONITIS [None]
  - PYREXIA [None]
